FAERS Safety Report 21293739 (Version 3)
Quarter: 2022Q4

REPORT INFORMATION
  Report Type: Report from Study
  Country: US (occurrence: US)
  Receive Date: 20220905
  Receipt Date: 20221129
  Transmission Date: 20230113
  Serious: Yes (Other)
  Sender: FDA-Public Use
  Company Number: US-NOVARTISTESTPH-NVSC2022US199144

PATIENT
  Sex: Female

DRUGS (1)
  1. MAYZENT [Suspect]
     Active Substance: SIPONIMOD
     Indication: Product used for unknown indication
     Dosage: 0.25 MG
     Route: 048

REACTIONS (10)
  - Cellulitis [Unknown]
  - Localised infection [Unknown]
  - Bladder spasm [Unknown]
  - Fall [Unknown]
  - Head injury [Unknown]
  - Joint swelling [Unknown]
  - Nausea [Unknown]
  - Headache [Unknown]
  - Peripheral swelling [Unknown]
  - Asthenia [Unknown]

NARRATIVE: CASE EVENT DATE: 20210101
